APPROVED DRUG PRODUCT: OXYCODONE HYDROCHLORIDE
Active Ingredient: OXYCODONE HYDROCHLORIDE
Strength: 30MG
Dosage Form/Route: TABLET;ORAL
Application: A076636 | Product #002
Applicant: ACTAVIS ELIZABETH LLC
Approved: Feb 6, 2004 | RLD: No | RS: No | Type: DISCN